FAERS Safety Report 9339158 (Version 4)
Quarter: 2013Q4

REPORT INFORMATION
  Report Type: Spontaneous
  Country: DK (occurrence: DK)
  Receive Date: 20130610
  Receipt Date: 20131205
  Transmission Date: 20140711
  Serious: Yes (Hospitalization)
  Sender: FDA-Public Use
  Company Number: DK-PFIZER INC-2013169900

PATIENT
  Age: 33 Year
  Sex: Female
  Weight: 120 kg

DRUGS (2)
  1. MINPROSTIN [Suspect]
     Indication: LABOUR INDUCTION
     Dosage: 3 MG, ONE DOSE AT 9:50AM AND SECOND DOSE AT 4:55PM
     Route: 067
     Dates: start: 20100421, end: 20100421
  2. SYNTOCINON [Suspect]
     Indication: LABOUR INDUCTION
     Dosage: 10 IU IN 1000ML NACL, FROM 3ML/HOUR UP TO 24ML/HOUR
     Route: 041
     Dates: start: 20100422, end: 20100422

REACTIONS (11)
  - Uterine rupture [Recovered/Resolved]
  - Abdominal pain lower [Recovered/Resolved]
  - Caesarean section [Recovered/Resolved]
  - Premature separation of placenta [Recovered/Resolved]
  - Dyspareunia [Unknown]
  - Sensory disturbance [Unknown]
  - Micturition disorder [Unknown]
  - Functional gastrointestinal disorder [Unknown]
  - Abdominal adhesions [Unknown]
  - Drug ineffective [Unknown]
  - Off label use [Unknown]
